FAERS Safety Report 25523978 (Version 1)
Quarter: 2025Q3

REPORT INFORMATION
  Report Type: Spontaneous
  Country: EU (occurrence: EU)
  Receive Date: 20250707
  Receipt Date: 20250707
  Transmission Date: 20251021
  Serious: Yes (Hospitalization)
  Sender: BAYER HEALTHCARE PHARMACEUTICALS INC.
  Company Number: EU-BAYER-2025A084907

PATIENT
  Age: 19 Year
  Sex: Male

DRUGS (1)
  1. CIPROFLOXACIN [Suspect]
     Active Substance: CIPROFLOXACIN
     Indication: Arthritis salmonella

REACTIONS (12)
  - Back pain [None]
  - Arthralgia [None]
  - Pyrexia [None]
  - Oedema peripheral [None]
  - Hepatocellular injury [None]
  - Myositis [None]
  - Arthritis bacterial [None]
  - Haematoma [None]
  - Haemoglobin decreased [None]
  - Bone infarction [None]
  - Joint space narrowing [None]
  - Bone disorder [None]
